FAERS Safety Report 18273676 (Version 4)
Quarter: 2020Q4

REPORT INFORMATION
  Report Type: Spontaneous
  Country: TR (occurrence: TR)
  Receive Date: 20200916
  Receipt Date: 20201016
  Transmission Date: 20210113
  Serious: Yes (Hospitalization, Other)
  Sender: FDA-Public Use
  Company Number: TR-PFIZER INC-2020353071

PATIENT
  Age: 44 Year
  Sex: Female

DRUGS (5)
  1. METHOTREXATE SODIUM. [Suspect]
     Active Substance: METHOTREXATE SODIUM
     Dosage: UNK
  2. ACETYLSALICYLIC ACID [Concomitant]
     Active Substance: ASPIRIN
     Dosage: UNK
  3. TENOFOVIR [Concomitant]
     Active Substance: TENOFOVIR
     Dosage: UNK
  4. RITUXIMAB. [Concomitant]
     Active Substance: RITUXIMAB
     Dosage: UNK
  5. FOLIC ACID. [Concomitant]
     Active Substance: FOLIC ACID
     Dosage: UNK

REACTIONS (2)
  - Cerebrovascular accident [Recovering/Resolving]
  - Hyperhomocysteinaemia [Unknown]
